FAERS Safety Report 11914132 (Version 1)
Quarter: 2016Q1

REPORT INFORMATION
  Report Type: Report from Study
  Country: US (occurrence: US)
  Receive Date: 20160113
  Receipt Date: 20160113
  Transmission Date: 20160526
  Serious: Yes (Hospitalization, Other)
  Sender: FDA-Public Use
  Company Number: US-ASTRAZENECA-2015SF02888

PATIENT
  Age: 821 Month
  Sex: Female
  Weight: 88 kg

DRUGS (3)
  1. BYDUREON [Suspect]
     Active Substance: EXENATIDE
     Indication: TYPE 2 DIABETES MELLITUS
     Route: 058
     Dates: start: 201507, end: 201510
  2. BYETTA [Suspect]
     Active Substance: EXENATIDE
     Indication: TYPE 2 DIABETES MELLITUS
     Route: 065
  3. BYDUREON [Suspect]
     Active Substance: EXENATIDE
     Indication: TYPE 2 DIABETES MELLITUS
     Route: 065
     Dates: start: 20150724, end: 20150918

REACTIONS (18)
  - Weight increased [Recovered/Resolved]
  - Oedema peripheral [Not Recovered/Not Resolved]
  - Asthenia [Unknown]
  - Diarrhoea [Recovering/Resolving]
  - Infection [Unknown]
  - Injection site mass [Recovering/Resolving]
  - Dehydration [Unknown]
  - Hypotension [Recovering/Resolving]
  - White blood cell count decreased [Not Recovered/Not Resolved]
  - Gastric disorder [Recovering/Resolving]
  - Dysgeusia [Unknown]
  - Drug ineffective [Unknown]
  - Vomiting [Unknown]
  - Blister [Recovering/Resolving]
  - Urinary tract infection [Recovering/Resolving]
  - Activities of daily living impaired [Unknown]
  - Back pain [Not Recovered/Not Resolved]
  - Feeding disorder [Unknown]

NARRATIVE: CASE EVENT DATE: 201507
